FAERS Safety Report 8548141 (Version 3)
Quarter: 2012Q4

REPORT INFORMATION
  Report Type: 
  Country: FR (occurrence: FR)
  Receive Date: 20120507
  Receipt Date: 20121011
  Transmission Date: 20130627
  Serious: Yes (Other)
  Sender: FDA-Public Use
  Company Number: FR-BRISTOL-MYERS SQUIBB COMPANY-16553984

PATIENT
  Age: 45 Year
  Sex: Female
  Weight: 85 kg

DRUGS (7)
  1. ABILIFY [Suspect]
     Indication: PERSONALITY DISORDER
     Dosage: Decresed to 5 mg
Resatrted on11JAn12,stopped on5Mar12, restatred in 21Apr12
     Dates: start: 20120111
  2. ABILIFY [Suspect]
     Indication: EATING DISORDER
     Dosage: Decresed to 5 mg
Resatrted on11JAn12,stopped on5Mar12, restatred in 21Apr12
     Dates: start: 20120111
  3. ABILIFY [Suspect]
     Indication: ANXIETY
     Dosage: Decresed to 5 mg
Resatrted on11JAn12,stopped on5Mar12, restatred in 21Apr12
     Dates: start: 20120111
  4. ABILIFY [Suspect]
     Indication: AFFECTIVE DISORDER
     Dosage: Decresed to 5 mg
Resatrted on11JAn12,stopped on5Mar12, restatred in 21Apr12
     Dates: start: 20120111
  5. EFFEXOR [Concomitant]
     Indication: DEPRESSION
     Route: 048
     Dates: start: 20120111
  6. STILNOX [Concomitant]
     Indication: SLEEP DISORDER
     Route: 048
     Dates: start: 20111119
  7. THERALENE [Concomitant]
     Indication: SLEEP DISORDER
     Route: 048

REACTIONS (2)
  - Thrombosis [Recovered/Resolved]
  - Parkinsonism [Recovered/Resolved]
